FAERS Safety Report 19362223 (Version 1)
Quarter: 2021Q2

REPORT INFORMATION
  Report Type: Spontaneous
  Country: US (occurrence: US)
  Receive Date: 20210601
  Receipt Date: 20210601
  Transmission Date: 20210717
  Serious: Yes (Other)
  Sender: FDA-Public Use
  Company Number: US-BAYER-2021-146664

PATIENT

DRUGS (1)
  1. MIRALAX [Suspect]
     Active Substance: POLYETHYLENE GLYCOL 3350
     Dosage: QD
     Dates: start: 20210512

REACTIONS (2)
  - Incorrect product administration duration [Unknown]
  - Haematochezia [Unknown]

NARRATIVE: CASE EVENT DATE: 202105
